FAERS Safety Report 6766449-7 (Version None)
Quarter: 2010Q2

REPORT INFORMATION
  Report Type: 
  Country: None (occurrence: None)
  Receive Date: 20100609
  Receipt Date: 20100607
  Transmission Date: 20101027
  Serious: Yes (Hospitalization)
  Sender: FDA-Public Use
  Company Number: 012635

PATIENT
  Sex: Female

DRUGS (13)
  1. CERTOLIZUMAB PEGOL (CERTOLIZUMAB PEGOL) [Suspect]
     Indication: RHEUMATOID ARTHRITIS
     Dosage: SUBCUTANEOUS
     Route: 058
     Dates: start: 20100107
  2. REBAMIPIDE [Concomitant]
  3. METHOTREXATE [Concomitant]
  4. FOLIC ACID [Concomitant]
  5. PREDNISOLONE [Concomitant]
  6. INDOMETHACIN [Concomitant]
  7. ALENDRONATE SODIUM [Concomitant]
  8. LANSOPRAZOLE [Concomitant]
  9. ROSUVASTATIN CALCIUM [Concomitant]
  10. ISONIAZID [Concomitant]
  11. OCTOTIAMINE [Concomitant]
  12. CEFDINIR [Concomitant]
  13. PIRENOXINE [Concomitant]

REACTIONS (5)
  - BACK PAIN [None]
  - BLOOD URIC ACID INCREASED [None]
  - CATARACT [None]
  - CYSTITIS [None]
  - ENDOMETRIAL CANCER [None]
